FAERS Safety Report 7296435-2 (Version None)
Quarter: 2011Q1

REPORT INFORMATION
  Report Type: 
  Country: None (occurrence: None)
  Receive Date: 20110216
  Receipt Date: 20110209
  Transmission Date: 20110831
  Serious: Yes (Hospitalization, Other)
  Sender: FDA-Public Use
  Company Number: FR-BRISTOL-MYERS SQUIBB COMPANY-15543127

PATIENT
  Age: 81 Year
  Sex: Female

DRUGS (10)
  1. LOXEN [Suspect]
     Indication: HYPERTENSION
     Route: 048
     Dates: end: 20110107
  2. MIANSERIN HCL [Suspect]
     Indication: DEPRESSION
     Route: 048
     Dates: end: 20110107
  3. FORLAX [Concomitant]
  4. TEMERIT [Suspect]
     Indication: HYPERTENSION
     Route: 048
  5. NEXIUM [Concomitant]
  6. IRBESARTAN [Suspect]
     Indication: HYPERTENSION
     Route: 048
  7. ACETAMINOPHEN AND TRAMADOL HCL [Suspect]
     Indication: PAIN
     Route: 048
  8. ALLOPURINOL [Concomitant]
  9. ADANCOR [Suspect]
     Indication: HYPERTENSION
  10. PRAVASTATIN SODIUM [Concomitant]

REACTIONS (9)
  - EYE MOVEMENT DISORDER [None]
  - LOSS OF CONSCIOUSNESS [None]
  - POSTURE ABNORMAL [None]
  - ORTHOSTATIC HYPOTENSION [None]
  - GASTROENTERITIS [None]
  - RENAL FAILURE [None]
  - HYPOTONIA [None]
  - URINARY INCONTINENCE [None]
  - PROTRUSION TONGUE [None]
